FAERS Safety Report 5004828-9 (Version None)
Quarter: 2006Q1

REPORT INFORMATION
  Report Type: 
  Country: None (occurrence: None)
  Receive Date: 20060321
  Receipt Date: 20060124
  Transmission Date: 20060701
  Serious: No
  Sender: FDA-Public Use
  Company Number: YPA20060013

PATIENT
  Age: 57 Year
  Sex: Female

DRUGS (10)
  1. VESICARE [Suspect]
     Indication: HYPERTONIC BLADDER
     Dosage: 5 MG, UID/QD, ORAL
     Route: 048
     Dates: start: 20051201
  2. NORVASC [Concomitant]
  3. MICARDIS [Concomitant]
  4. IMIPRAMINE [Concomitant]
  5. HALCION [Concomitant]
  6. METFORMIN ER (METFORMIN) [Concomitant]
  7. MOTRIN [Concomitant]
  8. VICODIN [Concomitant]
  9. ZYRTEC [Concomitant]
  10. COMBIVENT [Concomitant]

REACTIONS (2)
  - HEADACHE [None]
  - UPPER RESPIRATORY TRACT CONGESTION [None]
